FAERS Safety Report 8307388-X (Version None)
Quarter: 2012Q2

REPORT INFORMATION
  Report Type: 
  Country: None (occurrence: None)
  Receive Date: 20120424
  Receipt Date: 20120418
  Transmission Date: 20120825
  Serious: Yes (Death, Other)
  Sender: FDA-Public Use
  Company Number: US-BAYER-2011-052686

PATIENT
  Sex: Male
  Weight: 71 kg

DRUGS (29)
  1. GADOLINIUM IN UNSPECIFIED DRUG [Suspect]
     Indication: ANGIOGRAM
     Dosage: UNK
     Dates: start: 19991112, end: 19991112
  2. SENSIPAR [Concomitant]
  3. NEPHROCAPS [Concomitant]
     Dosage: UNK UNK, QD
  4. MAGNEVIST [Suspect]
     Indication: NUCLEAR MAGNETIC RESONANCE IMAGING ABDOMINAL
     Dosage: UNK
     Dates: start: 20010731, end: 20010731
  5. TOPROL-XL [Concomitant]
  6. WARFARIN SODIUM [Concomitant]
     Dosage: 5 MG, QD
  7. GADOLINIUM IN UNSPECIFIED DRUG [Suspect]
     Indication: NUCLEAR MAGNETIC RESONANCE IMAGING BRAIN
     Dosage: UNK
     Dates: start: 19980115
  8. GADOLINIUM IN UNSPECIFIED DRUG [Suspect]
     Dosage: UNK
     Dates: start: 20000630, end: 20000630
  9. LASIX [Concomitant]
  10. RENAGEL [Concomitant]
  11. MAG-TAB [Concomitant]
     Dosage: 84 MG, BID
  12. GADOLINIUM IN UNSPECIFIED DRUG [Suspect]
     Indication: NUCLEAR MAGNETIC RESONANCE IMAGING ABDOMINAL
     Dosage: UNK
     Dates: start: 19971106, end: 19971106
  13. PREDNISONE TAB [Concomitant]
  14. IRON [Concomitant]
  15. NORVASC [Concomitant]
  16. PROCARDIA [Concomitant]
  17. INDERAL [Concomitant]
  18. VASOTEC [Concomitant]
  19. COUMADIN [Concomitant]
  20. GADOLINIUM IN UNSPECIFIED DRUG [Suspect]
     Indication: NUCLEAR MAGNETIC RESONANCE IMAGING
     Dosage: UNK
     Dates: start: 19951002
  21. MINOXIDIL [Concomitant]
  22. LISINOPRIL [Concomitant]
  23. BUSPAR [Concomitant]
  24. MIDODRINE HYDROCHLORIDE [Concomitant]
     Dosage: 15 MG, 3 TIMES A WEEK
  25. EPOGEN [Concomitant]
  26. IMMUNOSUPPRESSIVE AGENTS [Concomitant]
  27. DIGOXIN [Concomitant]
  28. LEXAPRO [Concomitant]
  29. FOSRENOL [Concomitant]
     Indication: RENAL FAILURE CHRONIC
     Dosage: 1000 MG, TID

REACTIONS (15)
  - PAIN [None]
  - NEPHROGENIC SYSTEMIC FIBROSIS [None]
  - MUSCULOSKELETAL STIFFNESS [None]
  - JOINT CONTRACTURE [None]
  - DRY SKIN [None]
  - DISABILITY [None]
  - INJURY [None]
  - ANHEDONIA [None]
  - SKIN INDURATION [None]
  - SKIN HYPERTROPHY [None]
  - SKIN FIBROSIS [None]
  - ANXIETY [None]
  - MUSCLE RIGIDITY [None]
  - EMOTIONAL DISTRESS [None]
  - IMPAIRED HEALING [None]
